FAERS Safety Report 17704615 (Version 1)
Quarter: 2020Q2

REPORT INFORMATION
  Report Type: Spontaneous
  Country: US (occurrence: US)
  Receive Date: 20200424
  Receipt Date: 20200424
  Transmission Date: 20200714
  Serious: No
  Sender: FDA-Public Use
  Company Number: None

PATIENT
  Age: 35 Year
  Sex: Female

DRUGS (2)
  1. PREGNYL [Concomitant]
     Active Substance: CHORIOGONADOTROPIN ALFA
  2. LUPRON DEPOT [Suspect]
     Active Substance: LEUPROLIDE ACETATE
     Indication: INFERTILITY
     Route: 041
     Dates: start: 20200331

REACTIONS (2)
  - Hot flush [None]
  - Headache [None]

NARRATIVE: CASE EVENT DATE: 20200409
